FAERS Safety Report 5768594-1 (Version None)
Quarter: 2008Q2

REPORT INFORMATION
  Report Type: 
  Country: None (occurrence: None)
  Receive Date: 20080610
  Receipt Date: 20080530
  Transmission Date: 20081010
  Serious: Yes (Hospitalization)
  Sender: FDA-Public Use
  Company Number: CAP08000195

PATIENT
  Age: 76 Year
  Sex: Female

DRUGS (4)
  1. ACTONEL [Suspect]
     Indication: OSTEOPOROSIS
     Dosage: 35 MG, ONCE WEEKLY,  ORAL
     Route: 048
     Dates: end: 20080512
  2. ACTONEL [Suspect]
     Indication: OSTEOPOROSIS
     Dosage: 5 MG, DAILY, ORAL
     Route: 048
     Dates: end: 20020101
  3. HUMALOG /00030501/ (INSULIN) [Concomitant]
  4. LEVOTHYROXINE SODIUM [Concomitant]

REACTIONS (2)
  - BONE MARROW FAILURE [None]
  - HAEMOGLOBIN DECREASED [None]
